FAERS Safety Report 11688481 (Version 2)
Quarter: 2015Q4

REPORT INFORMATION
  Report Type: Spontaneous
  Country: US (occurrence: US)
  Receive Date: 20151101
  Receipt Date: 20151209
  Transmission Date: 20160304
  Serious: No
  Sender: FDA-Public Use
  Company Number: US-AMGEN-USASP2015112178

PATIENT
  Age: 49 Year
  Sex: Female

DRUGS (3)
  1. SORIATANE [Suspect]
     Active Substance: ACITRETIN
     Indication: PRODUCT USED FOR UNKNOWN INDICATION
     Dosage: UNK
     Route: 065
  2. ENBREL [Suspect]
     Active Substance: ETANERCEPT
     Indication: PSORIATIC ARTHROPATHY
  3. ENBREL [Suspect]
     Active Substance: ETANERCEPT
     Indication: PSORIASIS
     Dosage: 50 MG, TWICE A WEEK
     Route: 065
     Dates: start: 201507

REACTIONS (6)
  - Skin texture abnormal [Not Recovered/Not Resolved]
  - Injection site erythema [Unknown]
  - Injection site reaction [Unknown]
  - Skin exfoliation [Unknown]
  - Lip exfoliation [Unknown]
  - Rash pustular [Unknown]

NARRATIVE: CASE EVENT DATE: 2015
